FAERS Safety Report 25491901 (Version 2)
Quarter: 2025Q3

REPORT INFORMATION
  Report Type: Spontaneous
  Country: US (occurrence: US)
  Receive Date: 20250630
  Receipt Date: 20250818
  Transmission Date: 20251020
  Serious: Yes (Hospitalization, Other)
  Sender: SANOFI AVENTIS
  Company Number: US-SA-2025SA180536

PATIENT
  Age: 67 Year
  Sex: Male

DRUGS (3)
  1. DUPIXENT [Suspect]
     Active Substance: DUPILUMAB
     Indication: Dermatitis atopic
     Dosage: 300 MG, QOW
     Route: 058
     Dates: start: 20230220
  2. DUPIXENT [Suspect]
     Active Substance: DUPILUMAB
     Indication: Neurodermatitis
  3. DUPIXENT [Suspect]
     Active Substance: DUPILUMAB
     Indication: Dermatitis

REACTIONS (13)
  - Cardiac operation [Unknown]
  - Asthma [Unknown]
  - Contusion [Unknown]
  - Intervertebral disc protrusion [Unknown]
  - Psychomotor hyperactivity [Unknown]
  - Blood cholesterol increased [Unknown]
  - Sleep apnoea syndrome [Unknown]
  - Nerve compression [Unknown]
  - Hypertension [Unknown]
  - Insomnia [Unknown]
  - Urticaria [Unknown]
  - Product dose omission in error [Unknown]
  - Product use in unapproved indication [Unknown]

NARRATIVE: CASE EVENT DATE: 20230220
